FAERS Safety Report 8879472 (Version 2)
Quarter: 2013Q2

REPORT INFORMATION
  Report Type: Spontaneous
  Country: DE (occurrence: DE)
  Receive Date: 20121101
  Receipt Date: 20130515
  Transmission Date: 20140414
  Serious: Yes (Other)
  Sender: FDA-Public Use
  Company Number: DE-AMGEN-DEUSP2012068679

PATIENT
  Age: 39 Year
  Sex: Male

DRUGS (1)
  1. ENBREL [Suspect]
     Indication: ANKYLOSING SPONDYLITIS
     Dosage: 50 MG, 1X WEEKLY
     Dates: start: 20110101, end: 201204

REACTIONS (2)
  - Osteonecrosis [Not Recovered/Not Resolved]
  - Osteomyelitis [Not Recovered/Not Resolved]
